FAERS Safety Report 10677166 (Version 1)
Quarter: 2014Q4

REPORT INFORMATION
  Report Type: Spontaneous
  Country: DE (occurrence: DE)
  Receive Date: 20141226
  Receipt Date: 20141226
  Transmission Date: 20150529
  Serious: Yes (Hospitalization)
  Sender: FDA-Public Use
  Company Number: DE-ASTRAZENECA-2014SE98413

PATIENT
  Age: 74 Year
  Sex: Female

DRUGS (19)
  1. SEROQUEL [Suspect]
     Active Substance: QUETIAPINE FUMARATE
     Dosage: 300-450 MG PER DAY
     Route: 048
     Dates: start: 20120207, end: 20120220
  2. SEROQUEL [Suspect]
     Active Substance: QUETIAPINE FUMARATE
     Dosage: 500-550 MG/D
     Route: 048
     Dates: start: 20120221, end: 20120302
  3. SEROQUEL [Suspect]
     Active Substance: QUETIAPINE FUMARATE
     Route: 048
     Dates: start: 20120314
  4. TAVOR [Suspect]
     Active Substance: LORAZEPAM
     Route: 048
     Dates: start: 20120204
  5. ORFIRIL [Suspect]
     Active Substance: VALPROIC ACID
     Route: 048
     Dates: start: 20120315, end: 20120318
  6. REMERGIL [Suspect]
     Active Substance: MIRTAZAPINE
     Route: 048
  7. RISPERDAL [Suspect]
     Active Substance: RISPERIDONE
     Route: 048
     Dates: start: 20120314, end: 20120314
  8. TAVOR [Suspect]
     Active Substance: LORAZEPAM
     Route: 048
     Dates: start: 20120109, end: 20120131
  9. RISPERDAL [Suspect]
     Active Substance: RISPERIDONE
     Route: 048
     Dates: start: 20120315, end: 20120318
  10. TAVOR [Suspect]
     Active Substance: LORAZEPAM
     Route: 048
     Dates: start: 20120201, end: 20120203
  11. SEROQUEL [Suspect]
     Active Substance: QUETIAPINE FUMARATE
     Dosage: 50-250MG PER DAY
     Route: 048
     Dates: start: 20120125, end: 20120206
  12. SEROQUEL [Suspect]
     Active Substance: QUETIAPINE FUMARATE
     Route: 048
     Dates: start: 20120303, end: 20120313
  13. ZOLOFT [Suspect]
     Active Substance: SERTRALINE HYDROCHLORIDE
     Route: 048
     Dates: start: 20120208, end: 20120227
  14. ORFIRIL [Suspect]
     Active Substance: VALPROIC ACID
     Route: 048
     Dates: start: 20120319, end: 20120320
  15. ORFIRIL [Suspect]
     Active Substance: VALPROIC ACID
     Route: 048
     Dates: start: 20120321
  16. ZOLOFT [Suspect]
     Active Substance: SERTRALINE HYDROCHLORIDE
     Dosage: 50-100 MG/ DAY
     Route: 048
     Dates: start: 20120110, end: 20120207
  17. RISPERDAL [Suspect]
     Active Substance: RISPERIDONE
     Route: 048
     Dates: start: 20120319
  18. ZOLOFT [Suspect]
     Active Substance: SERTRALINE HYDROCHLORIDE
     Route: 048
     Dates: start: 20120228
  19. RISPERDAL [Suspect]
     Active Substance: RISPERIDONE
     Route: 048
     Dates: start: 20120312, end: 20120313

REACTIONS (1)
  - Pulmonary embolism [Recovered/Resolved]

NARRATIVE: CASE EVENT DATE: 20120324
